FAERS Safety Report 15196209 (Version 1)
Quarter: 2018Q3

REPORT INFORMATION
  Report Type: Report from Study
  Country: US (occurrence: US)
  Receive Date: 20180725
  Receipt Date: 20180725
  Transmission Date: 20181010
  Serious: Yes (Hospitalization, Other)
  Sender: FDA-Public Use
  Company Number: US-GILEAD-2018-0351029

PATIENT
  Age: 71 Year
  Sex: Female

DRUGS (1)
  1. RANOLAZINE. [Suspect]
     Active Substance: RANOLAZINE
     Indication: ANGINA PECTORIS
     Dosage: 250 MG, BID
     Route: 065

REACTIONS (9)
  - Blood creatinine abnormal [Not Recovered/Not Resolved]
  - Depressed level of consciousness [Not Recovered/Not Resolved]
  - Renal impairment [Not Recovered/Not Resolved]
  - Angina pectoris [Not Recovered/Not Resolved]
  - Wrong technique in product usage process [Unknown]
  - Hypoperfusion [Not Recovered/Not Resolved]
  - Drug dose omission [Unknown]
  - Polymyositis [Unknown]
  - Blood pressure systolic abnormal [Not Recovered/Not Resolved]

NARRATIVE: CASE EVENT DATE: 201807
